FAERS Safety Report 6891976-1 (Version None)
Quarter: 2010Q3

REPORT INFORMATION
  Report Type: 
  Country: None (occurrence: None)
  Receive Date: 20100731
  Receipt Date: 20071213
  Transmission Date: 20110219
  Serious: Yes (Other)
  Sender: FDA-Public Use
  Company Number: US-PFIZER INC-2007102679

PATIENT
  Sex: Male
  Weight: 84 kg

DRUGS (5)
  1. NORVASC [Suspect]
     Indication: HYPERTENSION
     Dates: start: 20010101, end: 20040101
  2. NORVASC [Suspect]
     Dates: start: 20040101
  3. STATINS [Concomitant]
  4. ALTACE [Concomitant]
  5. DRUG, UNSPECIFIED [Concomitant]

REACTIONS (4)
  - CHEST DISCOMFORT [None]
  - ERECTILE DYSFUNCTION [None]
  - HYPERTENSION [None]
  - LIMB DISCOMFORT [None]
